FAERS Safety Report 11538998 (Version 1)
Quarter: 2015Q3

REPORT INFORMATION
  Report Type: Spontaneous
  Country: FR (occurrence: FR)
  Receive Date: 20150923
  Receipt Date: 20150923
  Transmission Date: 20151125
  Serious: Yes (Hospitalization)
  Sender: FDA-Public Use
  Company Number: FR-ASTRAZENECA-2015SE89777

PATIENT
  Age: 29380 Day
  Sex: Female

DRUGS (10)
  1. CRESTOR [Suspect]
     Active Substance: ROSUVASTATIN CALCIUM
     Indication: ANGINA PECTORIS
     Route: 048
  2. KERLONE [Suspect]
     Active Substance: BETAXOLOL HYDROCHLORIDE
     Indication: SUPRAVENTRICULAR EXTRASYSTOLES
     Route: 065
  3. PREVISCAN [Suspect]
     Active Substance: FLUINDIONE
     Indication: ARRHYTHMIA
     Route: 065
  4. SPIRONOLACTONE. [Suspect]
     Active Substance: SPIRONOLACTONE
     Indication: ANGINA PECTORIS
     Route: 065
  5. ZOLPIDEM [Suspect]
     Active Substance: ZOLPIDEM\ZOLPIDEM TARTRATE
     Route: 065
  6. FLECAINE [Suspect]
     Active Substance: FLECAINIDE
     Indication: SUPRAVENTRICULAR EXTRASYSTOLES
     Route: 065
  7. ESOMEPRAZOLE [Suspect]
     Active Substance: ESOMEPRAZOLE
     Indication: PROPHYLAXIS AGAINST GASTROINTESTINAL ULCER
     Route: 065
  8. FUROSEMIDE. [Suspect]
     Active Substance: FUROSEMIDE
     Indication: ANGINA PECTORIS
     Route: 065
  9. SPASFON [Suspect]
     Active Substance: PHLOROGLUCINOL
     Route: 065
  10. PARACETAMOL [Suspect]
     Active Substance: ACETAMINOPHEN
     Route: 065

REACTIONS (3)
  - Asthenia [Unknown]
  - Dyspnoea [Unknown]
  - Bradycardia [Recovering/Resolving]

NARRATIVE: CASE EVENT DATE: 20150824
